FAERS Safety Report 23029452 (Version 2)
Quarter: 2023Q4

REPORT INFORMATION
  Report Type: Spontaneous
  Country: FR (occurrence: FR)
  Receive Date: 20231004
  Receipt Date: 20231204
  Transmission Date: 20240110
  Serious: Yes (Congenital Anomaly, Other)
  Sender: FDA-Public Use
  Company Number: None

PATIENT

DRUGS (3)
  1. DOVATO [Suspect]
     Active Substance: DOLUTEGRAVIR SODIUM\LAMIVUDINE
     Indication: HIV infection
     Dosage: 1 DF, QD
     Route: 064
     Dates: start: 2022, end: 20220805
  2. ISENTRESS [Suspect]
     Active Substance: RALTEGRAVIR POTASSIUM
     Indication: HIV infection
     Dosage: UNK
     Route: 064
     Dates: start: 2022, end: 2022
  3. TRUVADA [Suspect]
     Active Substance: EMTRICITABINE\TENOFOVIR DISOPROXIL FUMARATE
     Indication: HIV infection
     Dosage: 1 DF, QD
     Route: 064
     Dates: start: 2022, end: 2022

REACTIONS (5)
  - Congenital genital malformation [Not Recovered/Not Resolved]
  - Virilism [Not Recovered/Not Resolved]
  - Hyperandrogenism [Not Recovered/Not Resolved]
  - Premature baby [Not Recovered/Not Resolved]
  - Foetal exposure during pregnancy [Unknown]

NARRATIVE: CASE EVENT DATE: 20220805
